FAERS Safety Report 20907216 (Version 1)
Quarter: 2022Q2

REPORT INFORMATION
  Report Type: Spontaneous
  Country: GB (occurrence: None)
  Receive Date: 20220602
  Receipt Date: 20220602
  Transmission Date: 20220721
  Serious: Yes (Hospitalization)
  Sender: FDA-Public Use
  Company Number: 2022A206537

PATIENT
  Sex: Male

DRUGS (1)
  1. LOSEC [Suspect]
     Active Substance: OMEPRAZOLE
     Indication: Barrett^s oesophagus
     Dosage: 40 MG,LONG TERM USE OF 40 MG DOSE OF OMEPRAZOLE, 5
     Route: 065

REACTIONS (2)
  - Atrioventricular block [Not Recovered/Not Resolved]
  - Product use in unapproved indication [Recovered/Resolved]
